FAERS Safety Report 16156985 (Version 1)
Quarter: 2019Q2

REPORT INFORMATION
  Report Type: Spontaneous
  Country: US (occurrence: US)
  Receive Date: 20190228
  Receipt Date: 20190228
  Transmission Date: 20190711
  Serious: Yes (Hospitalization)
  Sender: FDA-Public Use
  Company Number: None

PATIENT
  Age: 56 Year
  Sex: Male
  Weight: 63 kg

DRUGS (1)
  1. ATORVASTATIN [Suspect]
     Active Substance: ATORVASTATIN
     Indication: HYPERLIPIDAEMIA
     Route: 048
     Dates: start: 20170224, end: 20180601

REACTIONS (13)
  - Alanine aminotransferase increased [None]
  - Nausea [None]
  - Blood magnesium decreased [None]
  - Blood triglycerides increased [None]
  - Blood bilirubin increased [None]
  - Blood thyroid stimulating hormone increased [None]
  - Fatigue [None]
  - Retching [None]
  - Laboratory test abnormal [None]
  - Aspartate aminotransferase increased [None]
  - Leukocytosis [None]
  - Blood alkaline phosphatase increased [None]
  - Mean cell volume abnormal [None]

NARRATIVE: CASE EVENT DATE: 20180601
